FAERS Safety Report 9036240 (Version 1)
Quarter: 2013Q1

REPORT INFORMATION
  Report Type: Spontaneous
  Country: CZ (occurrence: None)
  Receive Date: 20130114
  Receipt Date: 20130114
  Transmission Date: 20140127
  Serious: Yes (Hospitalization)
  Sender: FDA-Public Use
  Company Number: DSA_61805_2013

PATIENT
  Age: 70 Year
  Sex: Male

DRUGS (3)
  1. FLUOROURACIL (FLUOROURACIL) [Suspect]
     Indication: ADENOCARCINOMA
     Dosage: (DF)
     Dates: start: 200812, end: 200903
  2. OXALIPLATIN (OXALIPLATIN) [Suspect]
     Indication: ADENOCARCINOMA
     Dosage: (DF)
     Dates: start: 200812, end: 200903
  3. LEUCOVORIN /00566701/ (LEUCOVORIN-FOLINIC ACID) [Suspect]
     Indication: ADENOCARCINOMA
     Dosage: (DF)
     Dates: start: 200812, end: 200903

REACTIONS (1)
  - Ileus paralytic [None]
